FAERS Safety Report 21630171 (Version 3)
Quarter: 2022Q4

REPORT INFORMATION
  Report Type: Spontaneous
  Country: US (occurrence: US)
  Receive Date: 20221122
  Receipt Date: 20221222
  Transmission Date: 20230112
  Serious: Yes (Other)
  Sender: FDA-Public Use
  Company Number: US-BAUSCH-BL-2022-025687

PATIENT
  Age: 44 Year
  Sex: Female
  Weight: 59.020 kg

DRUGS (1)
  1. ARAZLO [Suspect]
     Active Substance: TAZAROTENE
     Indication: Acne
     Dosage: AS DIRECTED
     Route: 061

REACTIONS (3)
  - Skin cancer [Unknown]
  - Application site exfoliation [Recovering/Resolving]
  - Product use complaint [Unknown]
